FAERS Safety Report 9392961 (Version 1)
Quarter: 2013Q3

REPORT INFORMATION
  Report Type: Spontaneous
  Country: US (occurrence: None)
  Receive Date: 20130708
  Receipt Date: 20130708
  Transmission Date: 20140515
  Serious: Yes (Other)
  Sender: FDA-Public Use
  Company Number: None

PATIENT
  Age: 24 Year
  Sex: Female

DRUGS (1)
  1. METFORMIN [Suspect]
     Indication: TYPE 1 DIABETES MELLITUS

REACTIONS (8)
  - Nightmare [None]
  - Migraine [None]
  - Nausea [None]
  - Vomiting [None]
  - Abdominal pain upper [None]
  - Rash [None]
  - Scar [None]
  - Insomnia [None]
